FAERS Safety Report 7974754-1 (Version None)
Quarter: 2011Q4

REPORT INFORMATION
  Report Type: 
  Country: None (occurrence: None)
  Receive Date: 20111213
  Receipt Date: 20111209
  Transmission Date: 20120403
  Serious: Yes (Death, Hospitalization)
  Sender: FDA-Public Use
  Company Number: IT-ASTRAZENECA-2011SE74718

PATIENT
  Age: 32219 Day
  Sex: Female

DRUGS (4)
  1. PANTOPRAZOLE SODIUM [Concomitant]
     Route: 048
  2. ARIMIDEX [Suspect]
     Indication: BREAST CANCER
     Route: 048
     Dates: start: 20111017, end: 20111202
  3. VASEXTEN [Concomitant]
     Dosage: 10 MG PROLONGED-RELEASE CAPSULES
     Route: 048
  4. ASPIRIN [Concomitant]
     Route: 048

REACTIONS (1)
  - LIVER DISORDER [None]
